FAERS Safety Report 12271638 (Version 1)
Quarter: 2016Q2

REPORT INFORMATION
  Report Type: Report from Study
  Country: CO (occurrence: CO)
  Receive Date: 20160415
  Receipt Date: 20160415
  Transmission Date: 20160815
  Serious: Yes (Hospitalization)
  Sender: FDA-Public Use
  Company Number: PHHY2016CO050002

PATIENT
  Sex: Female
  Weight: 97 kg

DRUGS (1)
  1. TASIGNA [Suspect]
     Active Substance: NILOTINIB
     Indication: CHRONIC MYELOID LEUKAEMIA
     Dosage: 2 DF (150 MG), Q12H
     Route: 048
     Dates: start: 20130405

REACTIONS (4)
  - Hypertension [Unknown]
  - Platelet count increased [Unknown]
  - Tonsillitis [Unknown]
  - White blood cell count increased [Unknown]
